FAERS Safety Report 7884334-4 (Version None)
Quarter: 2011Q4

REPORT INFORMATION
  Report Type: 
  Country: None (occurrence: None)
  Receive Date: 20111102
  Receipt Date: 20111101
  Transmission Date: 20120403
  Serious: Yes (Hospitalization)
  Sender: FDA-Public Use
  Company Number: SE-ROCHE-799464

PATIENT
  Sex: Male
  Weight: 86 kg

DRUGS (8)
  1. TEMOZOLOMIDE [Suspect]
     Indication: GLIOBLASTOMA
     Dosage: LAST DOSE PRIOR TO SAE: 13 DEC 2010, DOSE: 75-150 MG/M2, FREQ: SCHEDULED
     Route: 048
     Dates: start: 20100705, end: 20101222
  2. ONDANSETRON [Concomitant]
  3. PROCARBAZINE HYDROCHLORIDE [Concomitant]
     Dosage: OFF STUDY TREATMENT
  4. LOMUSTINE [Concomitant]
     Dosage: OFF STUDY TREATMENT
  5. VINCRISTINE [Concomitant]
     Dosage: OFF STUDY TREATMENT
  6. CARBAMAZEPINE [Concomitant]
  7. CILAXORAL [Concomitant]
     Dosage: TDD: PER NEEDED
  8. AVASTIN [Suspect]
     Indication: PRODUCT USED FOR UNKNOWN INDICATION
     Dosage: OFF STUDY TREATMENT
     Route: 065

REACTIONS (2)
  - PULMONARY EMBOLISM [None]
  - DEEP VEIN THROMBOSIS [None]
